FAERS Safety Report 4527861-X (Version None)
Quarter: 2004Q4

REPORT INFORMATION
  Report Type: 
  Country: None (occurrence: None)
  Receive Date: 20041202
  Receipt Date: 20040903
  Transmission Date: 20050328
  Serious: No
  Sender: FDA-Public Use
  Company Number: 200420471BWH

PATIENT
  Sex: Male

DRUGS (4)
  1. LEVITRA [Suspect]
     Dosage: BIW, ORAL;  30 MG, ONCE, ORAL
     Route: 048
     Dates: start: 20040601, end: 20040903
  2. LEVITRA [Suspect]
     Dosage: BIW, ORAL;  30 MG, ONCE, ORAL
     Route: 048
     Dates: start: 20040903
  3. GLUCOPHAGE [Concomitant]
  4. VIAGRA [Concomitant]

REACTIONS (2)
  - HEADACHE [None]
  - MEDICATION ERROR [None]
